FAERS Safety Report 19352011 (Version 1)
Quarter: 2021Q2

REPORT INFORMATION
  Report Type: Report from Study
  Country: CA (occurrence: CA)
  Receive Date: 20210531
  Receipt Date: 20210531
  Transmission Date: 20210717
  Serious: Yes (Other)
  Sender: FDA-Public Use
  Company Number: CA-TAKEDA-2019TUS038199

PATIENT
  Age: 50 Year
  Sex: Female

DRUGS (7)
  1. CHAMPIX [Concomitant]
     Active Substance: VARENICLINE TARTRATE
     Dosage: UNK
  2. ZOLOFT [Concomitant]
     Active Substance: SERTRALINE HYDROCHLORIDE
     Dosage: 100 MILLIGRAM, QD
  3. ETICORT [Concomitant]
     Dosage: 9 MILLIGRAM, QD
  4. VEDOLIZUMAB [Suspect]
     Active Substance: VEDOLIZUMAB
     Dosage: 300 MILLIGRAM, Q4WEEKS
     Route: 042
     Dates: start: 20191102
  5. VEDOLIZUMAB [Suspect]
     Active Substance: VEDOLIZUMAB
     Dosage: 300 MILLIGRAM, Q4WEEKS
     Route: 042
  6. VITAMIN D NOS [Concomitant]
     Active Substance: VITAMIN D NOS
     Dosage: UNK UNK, QD
  7. VEDOLIZUMAB [Suspect]
     Active Substance: VEDOLIZUMAB
     Indication: CROHN^S DISEASE
     Dosage: 300 MILLIGRAM
     Route: 042
     Dates: start: 20190601

REACTIONS (9)
  - Off label use [Unknown]
  - Cough [Unknown]
  - Oropharyngeal pain [Not Recovered/Not Resolved]
  - Dysphonia [Unknown]
  - Choking [Unknown]
  - Oropharyngeal discomfort [Unknown]
  - Pneumonia [Recovering/Resolving]
  - Benign neoplasm of thyroid gland [Unknown]
  - Fatigue [Recovering/Resolving]

NARRATIVE: CASE EVENT DATE: 201906
